FAERS Safety Report 9936969 (Version 1)
Quarter: 2014Q1

REPORT INFORMATION
  Report Type: Spontaneous
  Country: US (occurrence: None)
  Receive Date: 20140115
  Receipt Date: 20140115
  Transmission Date: 20141002
  Serious: No
  Sender: FDA-Public Use
  Company Number: 2013US002695

PATIENT
  Sex: 0

DRUGS (1)
  1. ICLUSIG [Suspect]
     Indication: PRODUCT USED FOR UNKNOWN INDICATION
     Route: 048
     Dates: start: 201309

REACTIONS (2)
  - Visual impairment [None]
  - Blast cell crisis [None]
